FAERS Safety Report 5497106-5 (Version None)
Quarter: 2007Q4

REPORT INFORMATION
  Report Type: 
  Country: None (occurrence: None)
  Receive Date: 20071025
  Receipt Date: 20071017
  Transmission Date: 20080405
  Serious: Yes (Other)
  Sender: FDA-Public Use
  Company Number: CA-ASTRAZENECA-2007UW24391

PATIENT
  Age: 58 Year
  Sex: Female

DRUGS (4)
  1. ARIMIDEX [Suspect]
     Route: 048
  2. CALCIUM [Concomitant]
  3. GEN-ALPRAZOLAM [Concomitant]
  4. TYLENOL (CAPLET) [Concomitant]

REACTIONS (3)
  - DYSPHAGIA [None]
  - LARYNGEAL OEDEMA [None]
  - TONGUE DISORDER [None]
